FAERS Safety Report 5177390-8 (Version None)
Quarter: 2006Q4

REPORT INFORMATION
  Report Type: 
  Country: None (occurrence: None)
  Receive Date: 20061207
  Receipt Date: 20061129
  Transmission Date: 20070319
  Serious: Yes (Hospitalization)
  Sender: FDA-Public Use
  Company Number: 2006148358

PATIENT
  Sex: Male

DRUGS (3)
  1. CAMPTOSAR [Suspect]
     Indication: COLON CANCER
     Dosage: CYCLICAL, INTRAVENOUS
     Route: 042
     Dates: start: 20060910
  2. FLUOROURACIL [Suspect]
     Indication: COLON CANCER
     Dosage: 250 MG/ 5 ML (CYCLICAL), INTRAVENOUS
     Route: 042
     Dates: start: 20060910
  3. AVASTIN [Suspect]
     Indication: COLON CANCER
     Dosage: CYCLICAL, INTRAVENOUS
     Route: 042
     Dates: start: 20060910

REACTIONS (2)
  - IMPLANT SITE INFLAMMATION [None]
  - LIVIDITY [None]
